FAERS Safety Report 20491538 (Version 3)
Quarter: 2022Q1

REPORT INFORMATION
  Report Type: Report from Study
  Country: US (occurrence: None)
  Receive Date: 20220218
  Receipt Date: 20220314
  Transmission Date: 20220423
  Serious: Yes (Death, Hospitalization)
  Sender: FDA-Public Use
  Company Number: US-ROCHE-3002788

PATIENT
  Age: 57 Year
  Sex: Male
  Weight: 62.1 kg

DRUGS (4)
  1. ATEZOLIZUMAB [Suspect]
     Active Substance: ATEZOLIZUMAB
     Indication: Non-small cell lung cancer stage IV
     Route: 041
     Dates: start: 20211006
  2. CARBOPLATIN [Suspect]
     Active Substance: CARBOPLATIN
     Indication: Non-small cell lung cancer
     Dosage: ON 08/DEC/2021, LAST DOSE WAS ADMINISTERED PRIOR TO AE.?DOSE -AUC 5
     Route: 065
     Dates: start: 20211006
  3. PEMETREXED [Suspect]
     Active Substance: PEMETREXED
     Indication: Non-small cell lung cancer
     Dosage: ON 08/DEC/2021, LAST DOSE WAS ADMINISTERED PRIOR TO AE.
     Route: 065
     Dates: start: 20211006
  4. BEVACIZUMAB [Suspect]
     Active Substance: BEVACIZUMAB
     Indication: Non-small cell lung cancer
     Dosage: ON 08/DEC/2021, LAST DOSE WAS ADMINISTERED PRIOR TO AE.
     Route: 065
     Dates: start: 20211006

REACTIONS (6)
  - Seizure [Not Recovered/Not Resolved]
  - Hyponatraemia [Recovering/Resolving]
  - Hypertension [Unknown]
  - Mental status changes [Unknown]
  - Metastases to meninges [Unknown]
  - Death [Fatal]

NARRATIVE: CASE EVENT DATE: 20220108
